FAERS Safety Report 6372522-8 (Version None)
Quarter: 2009Q3

REPORT INFORMATION
  Report Type: 
  Country: None (occurrence: None)
  Receive Date: 20090924
  Receipt Date: 20080922
  Transmission Date: 20100115
  Serious: Yes (Other)
  Sender: FDA-Public Use
  Company Number: US-ASTRAZENECA-2008UW19907

PATIENT
  Age: 644 Month
  Sex: Female

DRUGS (19)
  1. SEROQUEL [Suspect]
     Indication: ANXIETY
     Route: 048
  2. SEROQUEL [Suspect]
     Route: 048
     Dates: start: 20050101
  3. SEROQUEL [Suspect]
     Route: 048
     Dates: start: 20080921
  4. ABILIFY [Suspect]
  5. ACTOS [Concomitant]
  6. ALTACE [Concomitant]
  7. AMBIEN [Concomitant]
  8. AMITIZA [Concomitant]
  9. ASPIRIN [Concomitant]
  10. BENADRYL [Concomitant]
  11. BUSPAR [Concomitant]
  12. KLONOPIN [Concomitant]
  13. LITHOBID [Concomitant]
  14. NEXIUM [Concomitant]
     Route: 048
  15. REQUIP [Concomitant]
  16. VESICARE [Concomitant]
  17. VOLTAREN [Concomitant]
  18. VICODIN [Concomitant]
  19. VYTORIN [Concomitant]

REACTIONS (2)
  - RESTLESSNESS [None]
  - TARDIVE DYSKINESIA [None]
